FAERS Safety Report 23793826 (Version 1)
Quarter: 2024Q2

REPORT INFORMATION
  Report Type: Spontaneous
  Country: US (occurrence: US)
  Receive Date: 20240429
  Receipt Date: 20240429
  Transmission Date: 20240716
  Serious: No
  Sender: FDA-Public Use
  Company Number: US-CSLP-50102265962-V13058407-82

PATIENT
  Age: 52 Year
  Sex: Male

DRUGS (2)
  1. ANTICOAGULANT SODIUM CITRATE [Suspect]
     Active Substance: SODIUM CITRATE
     Indication: Anticoagulant therapy
     Route: 050
     Dates: start: 20240414, end: 20240414
  2. GOLO [Concomitant]
     Indication: Weight decreased

REACTIONS (5)
  - Neck pain [Recovered/Resolved]
  - Thirst [Recovered/Resolved]
  - Muscle spasms [Recovered/Resolved]
  - Back pain [Recovered/Resolved]
  - Pain [Recovered/Resolved]

NARRATIVE: CASE EVENT DATE: 20240414
